FAERS Safety Report 5268269-1 (Version None)
Quarter: 2007Q1

REPORT INFORMATION
  Report Type: 
  Country: None (occurrence: None)
  Receive Date: 20070319
  Receipt Date: 20070308
  Transmission Date: 20070707
  Serious: Yes (Other)
  Sender: FDA-Public Use
  Company Number: ATWYE294320OCT06

PATIENT
  Sex: Female
  Weight: 50 kg

DRUGS (4)
  1. ENBREL [Suspect]
     Indication: POLYARTHRITIS
     Route: 058
     Dates: start: 20060407
  2. METHOTREXATE [Concomitant]
     Indication: POLYARTHRITIS
     Dates: start: 20060501
  3. URBASON [Concomitant]
  4. IMUREK [Concomitant]
     Indication: POLYARTHRITIS
     Dosage: 100 MG
     Dates: start: 20060601, end: 20060701

REACTIONS (1)
  - PERICARDIAL EFFUSION [None]
